FAERS Safety Report 6428297-7 (Version None)
Quarter: 2009Q4

REPORT INFORMATION
  Report Type: 
  Country: None (occurrence: None)
  Receive Date: 20091105
  Receipt Date: 20091012
  Transmission Date: 20100525
  Serious: No
  Sender: FDA-Public Use
  Company Number: US-BAYER-200936128NA

PATIENT
  Age: 44 Year
  Sex: Female
  Weight: 62 kg

DRUGS (1)
  1. MAGNEVIST [Suspect]
     Indication: BREAST CANCER
     Dosage: AS USED: 14 ML  UNIT DOSE: 100 ML
     Route: 042

REACTIONS (1)
  - NAUSEA [None]
